FAERS Safety Report 5097292-5 (Version None)
Quarter: 2006Q3

REPORT INFORMATION
  Report Type: 
  Country: None (occurrence: None)
  Receive Date: 20060906
  Receipt Date: 20050610
  Transmission Date: 20061208
  Serious: Yes (Other)
  Sender: FDA-Public Use
  Company Number: JP-BAYER-200510280BYL

PATIENT
  Sex: Female

DRUGS (2)
  1. GLUCOBAY [Suspect]
     Indication: DIABETES MELLITUS
     Dosage: TOTAL DAILY DOSE: 300 MG  UNIT DOSE: 100 MG
     Route: 048
     Dates: start: 20040610, end: 20040909
  2. BASEN [Concomitant]
     Route: 048

REACTIONS (4)
  - ANAEMIA [None]
  - ANOREXIA [None]
  - NAUSEA [None]
  - WEIGHT DECREASED [None]
